FAERS Safety Report 9162381 (Version 2)
Quarter: 2013Q2

REPORT INFORMATION
  Report Type: Spontaneous
  Country: US (occurrence: US)
  Receive Date: 20130314
  Receipt Date: 20130610
  Transmission Date: 20140414
  Serious: No
  Sender: FDA-Public Use
  Company Number: US-PFIZER INC-2013082668

PATIENT
  Age: 76 Year
  Sex: Female

DRUGS (2)
  1. METFORMIN HCL [Suspect]
     Dosage: UNK, 3X/DAY
     Route: 048
     Dates: start: 201207, end: 201303
  2. GLIBENCLAMIDE [Suspect]
     Dosage: UNK, 2X/DAY
     Route: 048
     Dates: start: 201207, end: 201303

REACTIONS (6)
  - Blood glucose fluctuation [Recovering/Resolving]
  - Night sweats [Unknown]
  - Disorientation [Unknown]
  - Glycosylated haemoglobin increased [Recovering/Resolving]
  - Drug hypersensitivity [Unknown]
  - Drug ineffective [Unknown]
